FAERS Safety Report 8320255-0 (Version None)
Quarter: 2012Q2

REPORT INFORMATION
  Report Type: 
  Country: None (occurrence: None)
  Receive Date: 20120430
  Receipt Date: 20120418
  Transmission Date: 20120825
  Serious: Yes (Other)
  Sender: FDA-Public Use
  Company Number: GB-AMGEN-GBRSP2012025430

PATIENT
  Age: 64 Year
  Sex: Male

DRUGS (1)
  1. ENBREL [Suspect]
     Dosage: 50 MG, 2X/WEEK

REACTIONS (2)
  - RHEUMATOID ARTHRITIS [None]
  - DRUG INEFFECTIVE [None]
